FAERS Safety Report 11497785 (Version 2)
Quarter: 2015Q4

REPORT INFORMATION
  Report Type: Spontaneous
  Country: US (occurrence: US)
  Receive Date: 20150911
  Receipt Date: 20151009
  Transmission Date: 20160304
  Serious: Yes (Hospitalization)
  Sender: FDA-Public Use
  Company Number: US-INCYTE CORPORATION-2015IN002819

PATIENT
  Age: 74 Year
  Sex: Female
  Weight: 66.8 kg

DRUGS (8)
  1. JAKAFI [Suspect]
     Active Substance: RUXOLITINIB
     Indication: POLYCYTHAEMIA VERA
     Dosage: 10 MG, BID
     Route: 048
     Dates: start: 20150609
  2. HYDROXYUREA. [Concomitant]
     Active Substance: HYDROXYUREA
  3. ASPIRIN. [Concomitant]
     Active Substance: ASPIRIN
  4. TOPROL XL [Concomitant]
     Active Substance: METOPROLOL SUCCINATE
  5. AGRYLIN [Concomitant]
     Active Substance: ANAGRELIDE HYDROCHLORIDE
  6. COUMADIN [Concomitant]
     Active Substance: WARFARIN SODIUM
  7. VALIUM [Concomitant]
     Active Substance: DIAZEPAM
  8. RANITIDINE [Concomitant]
     Active Substance: RANITIDINE\RANITIDINE HYDROCHLORIDE

REACTIONS (6)
  - Headache [Recovered/Resolved]
  - Vomiting [Recovered/Resolved]
  - Nausea [Recovered/Resolved]
  - Troponin increased [Recovered/Resolved]
  - Pain [Recovered/Resolved]
  - Cardiac failure congestive [Recovered/Resolved]

NARRATIVE: CASE EVENT DATE: 20150611
